FAERS Safety Report 7526270-9 (Version None)
Quarter: 2011Q2

REPORT INFORMATION
  Report Type: 
  Country: None (occurrence: None)
  Receive Date: 20110606
  Receipt Date: 20101220
  Transmission Date: 20111010
  Serious: Yes (Other)
  Sender: FDA-Public Use
  Company Number: US-BAYER-201024175NA

PATIENT
  Age: 28 Year
  Sex: Female
  Weight: 80.726 kg

DRUGS (4)
  1. DROSPIRENONE AND ETHINYL ESTRADIOL [Suspect]
     Indication: CONTRACEPTION
     Dosage: UNK UNK, UNK
     Route: 048
     Dates: start: 20080101, end: 20100101
  2. YASMIN [Suspect]
     Indication: ORAL CONTRACEPTION
     Dosage: UNK
     Dates: start: 20061129, end: 20080101
  3. YASMIN [Suspect]
     Dosage: UNK
     Dates: start: 20070118, end: 20080408
  4. VICODIN [Concomitant]
     Dosage: UNK
     Dates: start: 20070531

REACTIONS (13)
  - SCAR [None]
  - CONSTIPATION [None]
  - ANXIETY [None]
  - MEDICAL DIET [None]
  - FLATULENCE [None]
  - DIARRHOEA [None]
  - DEPRESSION [None]
  - CHOLELITHIASIS [None]
  - GALLBLADDER CHOLESTEROLOSIS [None]
  - ABDOMINAL DISTENSION [None]
  - DYSPEPSIA [None]
  - CHOLECYSTECTOMY [None]
  - CHOLECYSTITIS CHRONIC [None]
